FAERS Safety Report 9483707 (Version 2)
Quarter: 2013Q3

REPORT INFORMATION
  Report Type: Spontaneous
  Country: US (occurrence: US)
  Receive Date: 20130828
  Receipt Date: 20130926
  Transmission Date: 20140515
  Serious: Yes (Hospitalization)
  Sender: FDA-Public Use
  Company Number: US-BRISTOL-MYERS SQUIBB COMPANY-19201987

PATIENT
  Age: 63 Year
  Sex: Female
  Weight: 54.42 kg

DRUGS (15)
  1. COUMADINE [Suspect]
     Indication: DEEP VEIN THROMBOSIS
     Dosage: 12 YRS,REDUCED TO 5MG IN 2013?2 MG DAILY
  2. BICILLIN C-R [Interacting]
     Indication: RHEUMATIC FEVER
     Dosage: 1 DF: 1.2 MILLION UNITS NOS,50 YRS AGO
  3. VITAMIN K [Suspect]
     Indication: INTERNATIONAL NORMALISED RATIO INCREASED
     Dates: start: 2013
  4. XANAX [Concomitant]
     Indication: ANXIETY
  5. ZOLOFT [Concomitant]
     Indication: DEPRESSION
  6. MORPHINE [Concomitant]
     Indication: PAIN
  7. MS CONTIN [Concomitant]
     Indication: PAIN
  8. SLOW-K [Concomitant]
  9. CALCITRIOL [Concomitant]
  10. COREG [Concomitant]
  11. PRILOSEC [Concomitant]
  12. LASIX [Concomitant]
  13. COMBIVENT [Concomitant]
  14. FLOVENT [Concomitant]
  15. ALBUTEROL [Concomitant]
     Dosage: ALBUTEROL NEBULIZER

REACTIONS (5)
  - Fall [Unknown]
  - Hip fracture [Unknown]
  - Cardiac disorder [Unknown]
  - International normalised ratio increased [Unknown]
  - Drug interaction [Unknown]
